FAERS Safety Report 9558575 (Version 2)
Quarter: 2013Q4

REPORT INFORMATION
  Report Type: Report from Study
  Country: NL (occurrence: NL)
  Receive Date: 20130926
  Receipt Date: 20131018
  Transmission Date: 20140711
  Serious: Yes (Death)
  Sender: FDA-Public Use
  Company Number: PHHY2013NL107585

PATIENT
  Sex: Female

DRUGS (3)
  1. ACLASTA [Suspect]
     Indication: OSTEOPOROSIS
     Dosage: 5 MG PER 100 ML ONCE EVERY 52 WEEKS
     Route: 042
     Dates: start: 20111019
  2. ACLASTA [Suspect]
     Dosage: 5 MG PER 100 ML ONCE EVERY 52 WEEKS
     Route: 042
     Dates: start: 20121024
  3. CALCI CHEW [Concomitant]
     Dosage: UNK UKN, UNK

REACTIONS (1)
  - Brain stem stroke [Fatal]
